FAERS Safety Report 19953125 (Version 1)
Quarter: 2021Q4

REPORT INFORMATION
  Report Type: Spontaneous
  Country: US (occurrence: US)
  Receive Date: 20211013
  Receipt Date: 20211013
  Transmission Date: 20220303
  Serious: Yes (Hospitalization, Disabling, Other)
  Sender: FDA-Public Use
  Company Number: None

PATIENT
  Age: 85 Year
  Sex: Female
  Weight: 45.4 kg

DRUGS (2)
  1. APIXABAN [Suspect]
     Active Substance: APIXABAN
     Indication: Atrial fibrillation
     Route: 048
     Dates: start: 20141104, end: 20210924
  2. CALCIUM ACETATE [Suspect]
     Active Substance: CALCIUM ACETATE
     Route: 048
     Dates: start: 20170217

REACTIONS (7)
  - Cerebrovascular accident [None]
  - Dysarthria [None]
  - Hemiparesis [None]
  - Haematemesis [None]
  - Upper gastrointestinal haemorrhage [None]
  - Meningioma [None]
  - Acoustic neuroma [None]
